FAERS Safety Report 15566133 (Version 1)
Quarter: 2018Q4

REPORT INFORMATION
  Report Type: Report from Study
  Country: IT (occurrence: IT)
  Receive Date: 20181030
  Receipt Date: 20181030
  Transmission Date: 20190205
  Serious: Yes (Hospitalization)
  Sender: FDA-Public Use
  Company Number: IT-BAYER-2018-196004

PATIENT
  Age: 73 Year
  Sex: Male

DRUGS (3)
  1. ALMARYTM [Concomitant]
     Active Substance: FLECAINIDE ACETATE
     Dosage: UNK
  2. CARDIOASPIRIN 100 MG GASTRO-RESISTANT TABLETS [Suspect]
     Active Substance: ASPIRIN
     Indication: HYPERTENSION
     Dosage: 1 DF, UNK
     Route: 048
     Dates: start: 20070101, end: 20181002
  3. TOTALIP [Concomitant]
     Active Substance: ATORVASTATIN
     Dosage: UNK

REACTIONS (3)
  - Melaena [Recovering/Resolving]
  - Asthenia [Recovering/Resolving]
  - Dyspnoea exertional [Recovering/Resolving]

NARRATIVE: CASE EVENT DATE: 20181002
